FAERS Safety Report 18432624 (Version 1)
Quarter: 2020Q4

REPORT INFORMATION
  Report Type: Spontaneous
  Country: DZ (occurrence: DZ)
  Receive Date: 20201027
  Receipt Date: 20201027
  Transmission Date: 20210114
  Serious: Yes (Hospitalization, Other)
  Sender: FDA-Public Use
  Company Number: DZ-BIOVITRUM-2020DZ5647

PATIENT
  Age: 12 Year
  Sex: Male

DRUGS (1)
  1. KINERET [Suspect]
     Active Substance: ANAKINRA
     Indication: STILL^S DISEASE
     Dates: start: 2019

REACTIONS (3)
  - Condition aggravated [Unknown]
  - Still^s disease [Unknown]
  - Joint ankylosis [Unknown]

NARRATIVE: CASE EVENT DATE: 2020
